FAERS Safety Report 9958082 (Version 1)
Quarter: 2014Q1

REPORT INFORMATION
  Report Type: Report from Study
  Country: US (occurrence: US)
  Receive Date: 20140304
  Receipt Date: 20140304
  Transmission Date: 20141002
  Serious: No
  Sender: FDA-Public Use
  Company Number: US-ABBVIE-13P-163-1095046-00

PATIENT
  Age: 49 Year
  Sex: Female

DRUGS (6)
  1. HUMIRA [Suspect]
     Indication: COLITIS ULCERATIVE
     Dosage: SECOND LOADING DOSE
     Dates: start: 20130506
  2. MULTIVITAMIN [Concomitant]
     Indication: PRODUCT USED FOR UNKNOWN INDICATION
     Dosage: DAILY
  3. ZYRTEC [Concomitant]
     Indication: HYPERSENSITIVITY
  4. OTC ESTROGEN [Concomitant]
     Indication: HOT FLUSH
  5. FLEXERIL [Concomitant]
     Indication: PRODUCT USED FOR UNKNOWN INDICATION
     Dosage: AT BEDTIME
  6. KETOPROFEN [Concomitant]
     Indication: ARTHROPATHY

REACTIONS (1)
  - Injection site bruising [Recovering/Resolving]
